FAERS Safety Report 25476944 (Version 1)
Quarter: 2025Q2

REPORT INFORMATION
  Report Type: Other
  Country: CA (occurrence: CA)
  Receive Date: 20250625
  Receipt Date: 20250625
  Transmission Date: 20250716
  Serious: Yes (Other)
  Sender: LUPIN
  Company Number: CA-LUPIN PHARMACEUTICALS INC.-2025-05188

PATIENT
  Age: 53 Year
  Sex: Male

DRUGS (446)
  1. PROPRANOLOL [Suspect]
     Active Substance: PROPRANOLOL HYDROCHLORIDE
     Indication: Migraine
     Route: 065
  2. PROPRANOLOL [Suspect]
     Active Substance: PROPRANOLOL HYDROCHLORIDE
     Route: 065
  3. PROPRANOLOL [Suspect]
     Active Substance: PROPRANOLOL HYDROCHLORIDE
     Route: 065
  4. PROPRANOLOL [Suspect]
     Active Substance: PROPRANOLOL HYDROCHLORIDE
     Route: 065
  5. PROPRANOLOL [Suspect]
     Active Substance: PROPRANOLOL HYDROCHLORIDE
     Route: 065
  6. PROPRANOLOL [Suspect]
     Active Substance: PROPRANOLOL HYDROCHLORIDE
     Route: 065
  7. PROPRANOLOL [Suspect]
     Active Substance: PROPRANOLOL HYDROCHLORIDE
     Route: 065
  8. PROPRANOLOL [Suspect]
     Active Substance: PROPRANOLOL HYDROCHLORIDE
     Route: 065
  9. PROPRANOLOL [Suspect]
     Active Substance: PROPRANOLOL HYDROCHLORIDE
     Route: 065
  10. PROPRANOLOL [Suspect]
     Active Substance: PROPRANOLOL HYDROCHLORIDE
     Route: 065
  11. PROPRANOLOL [Suspect]
     Active Substance: PROPRANOLOL HYDROCHLORIDE
     Route: 065
  12. PROPRANOLOL [Suspect]
     Active Substance: PROPRANOLOL HYDROCHLORIDE
     Route: 065
  13. PROPRANOLOL [Suspect]
     Active Substance: PROPRANOLOL HYDROCHLORIDE
     Route: 065
  14. PROPRANOLOL [Suspect]
     Active Substance: PROPRANOLOL HYDROCHLORIDE
     Route: 065
  15. PROPRANOLOL [Suspect]
     Active Substance: PROPRANOLOL HYDROCHLORIDE
     Route: 065
  16. PROPRANOLOL [Suspect]
     Active Substance: PROPRANOLOL HYDROCHLORIDE
     Route: 065
  17. PROPRANOLOL [Suspect]
     Active Substance: PROPRANOLOL HYDROCHLORIDE
     Route: 065
  18. PROPRANOLOL [Suspect]
     Active Substance: PROPRANOLOL HYDROCHLORIDE
     Route: 065
  19. PROPRANOLOL [Suspect]
     Active Substance: PROPRANOLOL HYDROCHLORIDE
     Route: 065
  20. PROPRANOLOL [Suspect]
     Active Substance: PROPRANOLOL HYDROCHLORIDE
     Route: 065
  21. PROPRANOLOL [Suspect]
     Active Substance: PROPRANOLOL HYDROCHLORIDE
     Route: 065
  22. PROPRANOLOL [Suspect]
     Active Substance: PROPRANOLOL HYDROCHLORIDE
     Route: 065
  23. PROPRANOLOL [Suspect]
     Active Substance: PROPRANOLOL HYDROCHLORIDE
     Route: 065
  24. PROPRANOLOL [Suspect]
     Active Substance: PROPRANOLOL HYDROCHLORIDE
     Route: 065
  25. PROPRANOLOL [Suspect]
     Active Substance: PROPRANOLOL HYDROCHLORIDE
     Route: 065
  26. PROPRANOLOL [Suspect]
     Active Substance: PROPRANOLOL HYDROCHLORIDE
     Route: 065
  27. PROPRANOLOL [Suspect]
     Active Substance: PROPRANOLOL HYDROCHLORIDE
     Route: 065
  28. PROPRANOLOL [Suspect]
     Active Substance: PROPRANOLOL HYDROCHLORIDE
     Route: 065
  29. PROPRANOLOL [Suspect]
     Active Substance: PROPRANOLOL HYDROCHLORIDE
     Route: 065
  30. PROPRANOLOL [Suspect]
     Active Substance: PROPRANOLOL HYDROCHLORIDE
     Route: 065
  31. PROPRANOLOL [Suspect]
     Active Substance: PROPRANOLOL HYDROCHLORIDE
     Route: 065
  32. PROPRANOLOL [Suspect]
     Active Substance: PROPRANOLOL HYDROCHLORIDE
     Route: 065
  33. PROPRANOLOL [Suspect]
     Active Substance: PROPRANOLOL HYDROCHLORIDE
     Route: 065
  34. PROPRANOLOL [Suspect]
     Active Substance: PROPRANOLOL HYDROCHLORIDE
     Route: 065
  35. PROPRANOLOL [Suspect]
     Active Substance: PROPRANOLOL HYDROCHLORIDE
     Route: 065
  36. PROPRANOLOL [Suspect]
     Active Substance: PROPRANOLOL HYDROCHLORIDE
     Route: 065
  37. PROPRANOLOL [Suspect]
     Active Substance: PROPRANOLOL HYDROCHLORIDE
     Route: 065
  38. PROPRANOLOL [Suspect]
     Active Substance: PROPRANOLOL HYDROCHLORIDE
     Route: 065
  39. PROPRANOLOL [Suspect]
     Active Substance: PROPRANOLOL HYDROCHLORIDE
     Route: 065
  40. PROPRANOLOL [Suspect]
     Active Substance: PROPRANOLOL HYDROCHLORIDE
     Route: 065
  41. PROPRANOLOL [Suspect]
     Active Substance: PROPRANOLOL HYDROCHLORIDE
     Route: 065
  42. PROPRANOLOL [Suspect]
     Active Substance: PROPRANOLOL HYDROCHLORIDE
     Route: 065
  43. PROPRANOLOL [Suspect]
     Active Substance: PROPRANOLOL HYDROCHLORIDE
     Route: 065
  44. PROPRANOLOL [Suspect]
     Active Substance: PROPRANOLOL HYDROCHLORIDE
     Route: 065
  45. ACETAMINOPHEN [Suspect]
     Active Substance: ACETAMINOPHEN
     Indication: Migraine
     Route: 065
  46. ACETAMINOPHEN [Suspect]
     Active Substance: ACETAMINOPHEN
     Route: 065
  47. ACETAMINOPHEN [Suspect]
     Active Substance: ACETAMINOPHEN
     Route: 065
  48. ACETAMINOPHEN [Suspect]
     Active Substance: ACETAMINOPHEN
     Route: 065
  49. ACETAMINOPHEN [Suspect]
     Active Substance: ACETAMINOPHEN
     Route: 065
  50. ACETAMINOPHEN [Suspect]
     Active Substance: ACETAMINOPHEN
     Route: 065
  51. ACETAMINOPHEN [Suspect]
     Active Substance: ACETAMINOPHEN
     Route: 065
  52. ACETAMINOPHEN [Suspect]
     Active Substance: ACETAMINOPHEN
     Route: 065
  53. ACETAMINOPHEN\TRAMADOL [Suspect]
     Active Substance: ACETAMINOPHEN\TRAMADOL
     Indication: Migraine
     Route: 065
  54. ACETAMINOPHEN\TRAMADOL [Suspect]
     Active Substance: ACETAMINOPHEN\TRAMADOL
     Route: 065
  55. ACETAMINOPHEN\TRAMADOL [Suspect]
     Active Substance: ACETAMINOPHEN\TRAMADOL
     Route: 065
  56. ADVIL [Suspect]
     Active Substance: IBUPROFEN
     Indication: Product used for unknown indication
     Route: 065
  57. ALMOTRIPTAN MALATE [Suspect]
     Active Substance: ALMOTRIPTAN MALATE
     Indication: Migraine
     Route: 065
  58. ALMOTRIPTAN MALATE [Suspect]
     Active Substance: ALMOTRIPTAN MALATE
     Route: 065
  59. ALMOTRIPTAN MALATE [Suspect]
     Active Substance: ALMOTRIPTAN MALATE
     Route: 065
  60. ALMOTRIPTAN MALATE [Suspect]
     Active Substance: ALMOTRIPTAN MALATE
     Route: 065
  61. ALMOTRIPTAN MALATE [Suspect]
     Active Substance: ALMOTRIPTAN MALATE
     Route: 065
  62. ALMOTRIPTAN MALATE [Suspect]
     Active Substance: ALMOTRIPTAN MALATE
     Route: 065
  63. ALMOTRIPTAN MALATE [Suspect]
     Active Substance: ALMOTRIPTAN MALATE
     Route: 065
  64. ALMOTRIPTAN MALATE [Suspect]
     Active Substance: ALMOTRIPTAN MALATE
     Route: 065
  65. ALMOTRIPTAN MALATE [Suspect]
     Active Substance: ALMOTRIPTAN MALATE
     Route: 065
  66. ALMOTRIPTAN MALATE [Suspect]
     Active Substance: ALMOTRIPTAN MALATE
     Route: 065
  67. ALMOTRIPTAN MALATE [Suspect]
     Active Substance: ALMOTRIPTAN MALATE
     Route: 065
  68. ALMOTRIPTAN MALATE [Suspect]
     Active Substance: ALMOTRIPTAN MALATE
     Route: 065
  69. ALMOTRIPTAN MALATE [Suspect]
     Active Substance: ALMOTRIPTAN MALATE
     Route: 065
  70. ALMOTRIPTAN MALATE [Suspect]
     Active Substance: ALMOTRIPTAN MALATE
     Route: 065
  71. ALMOTRIPTAN MALATE [Suspect]
     Active Substance: ALMOTRIPTAN MALATE
     Route: 065
  72. ALMOTRIPTAN MALATE [Suspect]
     Active Substance: ALMOTRIPTAN MALATE
     Route: 065
  73. ALMOTRIPTAN MALATE [Suspect]
     Active Substance: ALMOTRIPTAN MALATE
     Route: 065
  74. ALMOTRIPTAN MALATE [Suspect]
     Active Substance: ALMOTRIPTAN MALATE
     Route: 065
  75. ALMOTRIPTAN MALATE [Suspect]
     Active Substance: ALMOTRIPTAN MALATE
     Route: 065
  76. ALMOTRIPTAN MALATE [Suspect]
     Active Substance: ALMOTRIPTAN MALATE
     Route: 065
  77. ALMOTRIPTAN MALATE [Suspect]
     Active Substance: ALMOTRIPTAN MALATE
     Route: 065
  78. ALMOTRIPTAN MALATE [Suspect]
     Active Substance: ALMOTRIPTAN MALATE
     Route: 065
  79. ALMOTRIPTAN MALATE [Suspect]
     Active Substance: ALMOTRIPTAN MALATE
     Route: 065
  80. ALMOTRIPTAN MALATE [Suspect]
     Active Substance: ALMOTRIPTAN MALATE
     Route: 065
  81. ALMOTRIPTAN MALATE [Suspect]
     Active Substance: ALMOTRIPTAN MALATE
     Route: 065
  82. ALMOTRIPTAN MALATE [Suspect]
     Active Substance: ALMOTRIPTAN MALATE
     Route: 065
  83. ALMOTRIPTAN MALATE [Suspect]
     Active Substance: ALMOTRIPTAN MALATE
     Route: 065
  84. ALMOTRIPTAN MALATE [Suspect]
     Active Substance: ALMOTRIPTAN MALATE
     Route: 065
  85. ALMOTRIPTAN MALATE [Suspect]
     Active Substance: ALMOTRIPTAN MALATE
     Route: 065
  86. ALMOTRIPTAN MALATE [Suspect]
     Active Substance: ALMOTRIPTAN MALATE
     Route: 065
  87. ALMOTRIPTAN MALATE [Suspect]
     Active Substance: ALMOTRIPTAN MALATE
     Route: 065
  88. ALMOTRIPTAN MALATE [Suspect]
     Active Substance: ALMOTRIPTAN MALATE
     Route: 065
  89. ALMOTRIPTAN MALATE [Suspect]
     Active Substance: ALMOTRIPTAN MALATE
     Route: 065
  90. ALMOTRIPTAN MALATE [Suspect]
     Active Substance: ALMOTRIPTAN MALATE
     Route: 065
  91. ALMOTRIPTAN MALATE [Suspect]
     Active Substance: ALMOTRIPTAN MALATE
     Route: 065
  92. ALMOTRIPTAN MALATE [Suspect]
     Active Substance: ALMOTRIPTAN MALATE
     Route: 065
  93. ALMOTRIPTAN MALATE [Suspect]
     Active Substance: ALMOTRIPTAN MALATE
     Route: 065
  94. ALMOTRIPTAN MALATE [Suspect]
     Active Substance: ALMOTRIPTAN MALATE
     Route: 065
  95. ALMOTRIPTAN MALATE [Suspect]
     Active Substance: ALMOTRIPTAN MALATE
     Route: 065
  96. ALMOTRIPTAN MALATE [Suspect]
     Active Substance: ALMOTRIPTAN MALATE
     Route: 065
  97. ALMOTRIPTAN MALATE [Suspect]
     Active Substance: ALMOTRIPTAN MALATE
     Route: 065
  98. ALMOTRIPTAN MALATE [Suspect]
     Active Substance: ALMOTRIPTAN MALATE
     Route: 065
  99. ALMOTRIPTAN MALATE [Suspect]
     Active Substance: ALMOTRIPTAN MALATE
     Route: 065
  100. ALMOTRIPTAN MALATE [Suspect]
     Active Substance: ALMOTRIPTAN MALATE
     Route: 065
  101. ALMOTRIPTAN MALATE [Suspect]
     Active Substance: ALMOTRIPTAN MALATE
     Route: 065
  102. ALMOTRIPTAN MALATE [Suspect]
     Active Substance: ALMOTRIPTAN MALATE
     Route: 065
  103. ALMOTRIPTAN MALATE [Suspect]
     Active Substance: ALMOTRIPTAN MALATE
     Route: 065
  104. ALMOTRIPTAN MALATE [Suspect]
     Active Substance: ALMOTRIPTAN MALATE
     Route: 065
  105. ALMOTRIPTAN MALATE [Suspect]
     Active Substance: ALMOTRIPTAN MALATE
     Route: 065
  106. ALMOTRIPTAN MALATE [Suspect]
     Active Substance: ALMOTRIPTAN MALATE
     Route: 065
  107. AMITRIPTYLINE [Suspect]
     Active Substance: AMITRIPTYLINE
     Indication: Product used for unknown indication
     Route: 065
  108. AMITRIPTYLINE [Suspect]
     Active Substance: AMITRIPTYLINE
     Route: 065
  109. AMITRIPTYLINE [Suspect]
     Active Substance: AMITRIPTYLINE
     Route: 065
  110. AMITRIPTYLINE [Suspect]
     Active Substance: AMITRIPTYLINE
     Route: 065
  111. AMITRIPTYLINE [Suspect]
     Active Substance: AMITRIPTYLINE
     Route: 065
  112. AMITRIPTYLINE [Suspect]
     Active Substance: AMITRIPTYLINE
     Route: 065
  113. AMITRIPTYLINE [Suspect]
     Active Substance: AMITRIPTYLINE
     Route: 065
  114. AMITRIPTYLINE [Suspect]
     Active Substance: AMITRIPTYLINE
     Route: 065
  115. AMITRIPTYLINE [Suspect]
     Active Substance: AMITRIPTYLINE
     Route: 065
  116. AMITRIPTYLINE [Suspect]
     Active Substance: AMITRIPTYLINE
     Route: 065
  117. AMITRIPTYLINE [Suspect]
     Active Substance: AMITRIPTYLINE
     Route: 065
  118. AMITRIPTYLINE [Suspect]
     Active Substance: AMITRIPTYLINE
     Route: 065
  119. AMITRIPTYLINE [Suspect]
     Active Substance: AMITRIPTYLINE
     Route: 065
  120. AMITRIPTYLINE [Suspect]
     Active Substance: AMITRIPTYLINE
     Route: 065
  121. AMITRIPTYLINE [Suspect]
     Active Substance: AMITRIPTYLINE
     Route: 065
  122. AMITRIPTYLINE [Suspect]
     Active Substance: AMITRIPTYLINE
     Route: 065
  123. AMITRIPTYLINE [Suspect]
     Active Substance: AMITRIPTYLINE
     Route: 065
  124. AMITRIPTYLINE [Suspect]
     Active Substance: AMITRIPTYLINE
     Route: 065
  125. BOTOX [Suspect]
     Active Substance: ONABOTULINUMTOXINA
     Indication: Product used for unknown indication
     Route: 065
  126. BOTOX [Suspect]
     Active Substance: ONABOTULINUMTOXINA
     Route: 065
  127. BOTOX [Suspect]
     Active Substance: ONABOTULINUMTOXINA
     Route: 065
  128. BOTOX [Suspect]
     Active Substance: ONABOTULINUMTOXINA
     Route: 065
  129. BOTOX [Suspect]
     Active Substance: ONABOTULINUMTOXINA
     Route: 065
  130. BOTOX [Suspect]
     Active Substance: ONABOTULINUMTOXINA
     Route: 065
  131. BOTOX [Suspect]
     Active Substance: ONABOTULINUMTOXINA
     Route: 065
  132. BOTOX [Suspect]
     Active Substance: ONABOTULINUMTOXINA
     Route: 065
  133. BOTOX [Suspect]
     Active Substance: ONABOTULINUMTOXINA
     Route: 065
  134. BOTOX [Suspect]
     Active Substance: ONABOTULINUMTOXINA
     Route: 065
  135. BOTOX [Suspect]
     Active Substance: ONABOTULINUMTOXINA
     Route: 065
  136. BOTOX [Suspect]
     Active Substance: ONABOTULINUMTOXINA
     Route: 065
  137. BOTOX [Suspect]
     Active Substance: ONABOTULINUMTOXINA
     Route: 065
  138. BOTOX [Suspect]
     Active Substance: ONABOTULINUMTOXINA
     Route: 065
  139. BOTOX [Suspect]
     Active Substance: ONABOTULINUMTOXINA
     Route: 065
  140. BOTOX [Suspect]
     Active Substance: ONABOTULINUMTOXINA
     Route: 065
  141. BOTOX [Suspect]
     Active Substance: ONABOTULINUMTOXINA
     Route: 065
  142. BOTOX [Suspect]
     Active Substance: ONABOTULINUMTOXINA
     Route: 065
  143. BOTOX [Suspect]
     Active Substance: ONABOTULINUMTOXINA
     Route: 065
  144. BOTOX [Suspect]
     Active Substance: ONABOTULINUMTOXINA
     Route: 065
  145. BOTOX [Suspect]
     Active Substance: ONABOTULINUMTOXINA
     Route: 065
  146. BOTOX [Suspect]
     Active Substance: ONABOTULINUMTOXINA
     Route: 065
  147. BOTOX [Suspect]
     Active Substance: ONABOTULINUMTOXINA
     Route: 065
  148. BOTOX [Suspect]
     Active Substance: ONABOTULINUMTOXINA
     Route: 065
  149. BOTOX [Suspect]
     Active Substance: ONABOTULINUMTOXINA
     Route: 065
  150. BOTOX [Suspect]
     Active Substance: ONABOTULINUMTOXINA
     Route: 065
  151. BOTOX [Suspect]
     Active Substance: ONABOTULINUMTOXINA
     Route: 065
  152. BOTOX [Suspect]
     Active Substance: ONABOTULINUMTOXINA
     Route: 065
  153. BOTOX [Suspect]
     Active Substance: ONABOTULINUMTOXINA
     Route: 065
  154. BOTOX [Suspect]
     Active Substance: ONABOTULINUMTOXINA
     Route: 065
  155. BOTOX [Suspect]
     Active Substance: ONABOTULINUMTOXINA
     Route: 065
  156. BOTOX [Suspect]
     Active Substance: ONABOTULINUMTOXINA
     Route: 065
  157. BOTOX [Suspect]
     Active Substance: ONABOTULINUMTOXINA
     Route: 065
  158. BOTOX [Suspect]
     Active Substance: ONABOTULINUMTOXINA
     Route: 065
  159. BOTOX [Suspect]
     Active Substance: ONABOTULINUMTOXINA
     Route: 065
  160. BOTOX [Suspect]
     Active Substance: ONABOTULINUMTOXINA
     Route: 065
  161. BOTOX [Suspect]
     Active Substance: ONABOTULINUMTOXINA
     Route: 065
  162. BOTOX [Suspect]
     Active Substance: ONABOTULINUMTOXINA
     Route: 065
  163. BOTOX [Suspect]
     Active Substance: ONABOTULINUMTOXINA
     Route: 065
  164. BOTOX [Suspect]
     Active Substance: ONABOTULINUMTOXINA
     Route: 065
  165. BOTOX [Suspect]
     Active Substance: ONABOTULINUMTOXINA
     Route: 065
  166. BOTOX [Suspect]
     Active Substance: ONABOTULINUMTOXINA
     Route: 065
  167. BOTOX [Suspect]
     Active Substance: ONABOTULINUMTOXINA
     Route: 065
  168. BOTOX [Suspect]
     Active Substance: ONABOTULINUMTOXINA
     Route: 065
  169. BOTOX [Suspect]
     Active Substance: ONABOTULINUMTOXINA
     Route: 065
  170. BOTOX [Suspect]
     Active Substance: ONABOTULINUMTOXINA
     Route: 065
  171. BOTOX [Suspect]
     Active Substance: ONABOTULINUMTOXINA
     Route: 065
  172. BOTOX [Suspect]
     Active Substance: ONABOTULINUMTOXINA
     Route: 065
  173. BOTOX [Suspect]
     Active Substance: ONABOTULINUMTOXINA
     Route: 065
  174. BOTOX [Suspect]
     Active Substance: ONABOTULINUMTOXINA
     Route: 065
  175. BOTOX [Suspect]
     Active Substance: ONABOTULINUMTOXINA
     Indication: Product used for unknown indication
     Route: 065
  176. BOTULINUM TOXIN TYPE A [Suspect]
     Active Substance: BOTULINUM TOXIN TYPE A
     Indication: Product used for unknown indication
  177. CELECOXIB [Suspect]
     Active Substance: CELECOXIB
     Indication: Product used for unknown indication
     Route: 065
  178. CODEINE [Suspect]
     Active Substance: CODEINE
     Indication: Migraine
     Route: 065
  179. CODEINE [Suspect]
     Active Substance: CODEINE
     Route: 065
  180. CODEINE [Suspect]
     Active Substance: CODEINE
     Route: 065
  181. CODEINE [Suspect]
     Active Substance: CODEINE
     Route: 065
  182. CODEINE [Suspect]
     Active Substance: CODEINE
     Route: 065
  183. CODEINE [Suspect]
     Active Substance: CODEINE
     Route: 065
  184. CODEINE [Suspect]
     Active Substance: CODEINE
     Route: 065
  185. CODEINE [Suspect]
     Active Substance: CODEINE
     Route: 065
  186. CODEINE [Suspect]
     Active Substance: CODEINE
     Route: 065
  187. CODEINE [Suspect]
     Active Substance: CODEINE
     Route: 065
  188. CODEINE [Suspect]
     Active Substance: CODEINE
     Route: 065
  189. CODEINE [Suspect]
     Active Substance: CODEINE
     Route: 065
  190. CODEINE [Suspect]
     Active Substance: CODEINE
     Route: 065
  191. CODEINE [Suspect]
     Active Substance: CODEINE
     Route: 065
  192. CODEINE [Suspect]
     Active Substance: CODEINE
     Route: 065
  193. CODEINE [Suspect]
     Active Substance: CODEINE
     Route: 065
  194. CODEINE [Suspect]
     Active Substance: CODEINE
     Route: 065
  195. CODEINE [Suspect]
     Active Substance: CODEINE
     Route: 065
  196. CODEINE [Suspect]
     Active Substance: CODEINE
     Route: 065
  197. CODEINE [Suspect]
     Active Substance: CODEINE
     Route: 065
  198. CODEINE [Suspect]
     Active Substance: CODEINE
     Route: 065
  199. CODEINE [Suspect]
     Active Substance: CODEINE
     Route: 065
  200. CODEINE [Suspect]
     Active Substance: CODEINE
     Route: 065
  201. CODEINE [Suspect]
     Active Substance: CODEINE
     Route: 065
  202. CODEINE [Suspect]
     Active Substance: CODEINE
     Route: 065
  203. CODEINE [Suspect]
     Active Substance: CODEINE
     Route: 065
  204. CODEINE [Suspect]
     Active Substance: CODEINE
     Route: 065
  205. CODEINE [Suspect]
     Active Substance: CODEINE
     Route: 065
  206. CODEINE [Suspect]
     Active Substance: CODEINE
     Route: 065
  207. CODEINE [Suspect]
     Active Substance: CODEINE
     Route: 065
  208. CODEINE [Suspect]
     Active Substance: CODEINE
     Route: 065
  209. CODEINE [Suspect]
     Active Substance: CODEINE
     Route: 065
  210. CODEINE SULFATE [Suspect]
     Active Substance: CODEINE SULFATE
     Indication: Migraine
  211. CODEINE SULFATE [Suspect]
     Active Substance: CODEINE SULFATE
  212. DEMEROL [Suspect]
     Active Substance: MEPERIDINE HYDROCHLORIDE
     Indication: Product used for unknown indication
     Route: 065
  213. DEMEROL [Suspect]
     Active Substance: MEPERIDINE HYDROCHLORIDE
     Route: 065
  214. DEMEROL [Suspect]
     Active Substance: MEPERIDINE HYDROCHLORIDE
     Route: 065
  215. DEMEROL [Suspect]
     Active Substance: MEPERIDINE HYDROCHLORIDE
     Route: 065
  216. DEMEROL [Suspect]
     Active Substance: MEPERIDINE HYDROCHLORIDE
     Route: 065
  217. DEMEROL [Suspect]
     Active Substance: MEPERIDINE HYDROCHLORIDE
     Route: 065
  218. DEMEROL [Suspect]
     Active Substance: MEPERIDINE HYDROCHLORIDE
     Route: 065
  219. DEMEROL [Suspect]
     Active Substance: MEPERIDINE HYDROCHLORIDE
     Route: 065
  220. DEMEROL [Suspect]
     Active Substance: MEPERIDINE HYDROCHLORIDE
     Route: 065
  221. DEMEROL [Suspect]
     Active Substance: MEPERIDINE HYDROCHLORIDE
     Route: 065
  222. DEMEROL [Suspect]
     Active Substance: MEPERIDINE HYDROCHLORIDE
     Route: 065
  223. DEMEROL [Suspect]
     Active Substance: MEPERIDINE HYDROCHLORIDE
     Route: 065
  224. DEMEROL [Suspect]
     Active Substance: MEPERIDINE HYDROCHLORIDE
     Route: 065
  225. DEMEROL [Suspect]
     Active Substance: MEPERIDINE HYDROCHLORIDE
     Route: 065
  226. DEMEROL [Suspect]
     Active Substance: MEPERIDINE HYDROCHLORIDE
     Route: 065
  227. DEMEROL [Suspect]
     Active Substance: MEPERIDINE HYDROCHLORIDE
     Route: 065
  228. DEMEROL [Suspect]
     Active Substance: MEPERIDINE HYDROCHLORIDE
     Route: 065
  229. DEMEROL [Suspect]
     Active Substance: MEPERIDINE HYDROCHLORIDE
     Route: 065
  230. DEMEROL [Suspect]
     Active Substance: MEPERIDINE HYDROCHLORIDE
     Route: 065
  231. DEMEROL [Suspect]
     Active Substance: MEPERIDINE HYDROCHLORIDE
     Route: 065
  232. DEMEROL [Suspect]
     Active Substance: MEPERIDINE HYDROCHLORIDE
     Route: 065
  233. DEMEROL [Suspect]
     Active Substance: MEPERIDINE HYDROCHLORIDE
     Route: 065
  234. DEMEROL [Suspect]
     Active Substance: MEPERIDINE HYDROCHLORIDE
     Route: 065
  235. DEMEROL [Suspect]
     Active Substance: MEPERIDINE HYDROCHLORIDE
     Route: 065
  236. DEMEROL [Suspect]
     Active Substance: MEPERIDINE HYDROCHLORIDE
     Route: 065
  237. DEMEROL [Suspect]
     Active Substance: MEPERIDINE HYDROCHLORIDE
     Route: 065
  238. DEMEROL [Suspect]
     Active Substance: MEPERIDINE HYDROCHLORIDE
     Route: 065
  239. DEMEROL [Suspect]
     Active Substance: MEPERIDINE HYDROCHLORIDE
     Route: 065
  240. DEMEROL [Suspect]
     Active Substance: MEPERIDINE HYDROCHLORIDE
     Route: 065
  241. DEMEROL [Suspect]
     Active Substance: MEPERIDINE HYDROCHLORIDE
     Route: 065
  242. DEMEROL [Suspect]
     Active Substance: MEPERIDINE HYDROCHLORIDE
     Route: 065
  243. DEMEROL [Suspect]
     Active Substance: MEPERIDINE HYDROCHLORIDE
     Route: 065
  244. DEMEROL [Suspect]
     Active Substance: MEPERIDINE HYDROCHLORIDE
     Route: 065
  245. DEMEROL [Suspect]
     Active Substance: MEPERIDINE HYDROCHLORIDE
     Route: 065
  246. DEMEROL [Suspect]
     Active Substance: MEPERIDINE HYDROCHLORIDE
     Route: 065
  247. DEMEROL [Suspect]
     Active Substance: MEPERIDINE HYDROCHLORIDE
     Route: 065
  248. DEMEROL [Suspect]
     Active Substance: MEPERIDINE HYDROCHLORIDE
     Route: 065
  249. DEMEROL [Suspect]
     Active Substance: MEPERIDINE HYDROCHLORIDE
     Route: 065
  250. DEMEROL [Suspect]
     Active Substance: MEPERIDINE HYDROCHLORIDE
     Route: 065
  251. DEMEROL [Suspect]
     Active Substance: MEPERIDINE HYDROCHLORIDE
     Route: 065
  252. DEMEROL [Suspect]
     Active Substance: MEPERIDINE HYDROCHLORIDE
     Route: 065
  253. DEMEROL [Suspect]
     Active Substance: MEPERIDINE HYDROCHLORIDE
     Route: 065
  254. DEMEROL [Suspect]
     Active Substance: MEPERIDINE HYDROCHLORIDE
     Route: 065
  255. DEMEROL [Suspect]
     Active Substance: MEPERIDINE HYDROCHLORIDE
     Route: 065
  256. DEMEROL [Suspect]
     Active Substance: MEPERIDINE HYDROCHLORIDE
     Route: 065
  257. DEMEROL [Suspect]
     Active Substance: MEPERIDINE HYDROCHLORIDE
     Route: 065
  258. DEMEROL [Suspect]
     Active Substance: MEPERIDINE HYDROCHLORIDE
     Route: 065
  259. DEMEROL [Suspect]
     Active Substance: MEPERIDINE HYDROCHLORIDE
     Route: 065
  260. DEMEROL [Suspect]
     Active Substance: MEPERIDINE HYDROCHLORIDE
     Route: 065
  261. DEMEROL [Suspect]
     Active Substance: MEPERIDINE HYDROCHLORIDE
     Route: 065
  262. DICLOFENAC [Suspect]
     Active Substance: DICLOFENAC
     Indication: Migraine
     Route: 065
  263. DICLOFENAC [Suspect]
     Active Substance: DICLOFENAC
     Route: 065
  264. DIHYDROERGOTAMINE MESYLATE [Suspect]
     Active Substance: DIHYDROERGOTAMINE MESYLATE
     Indication: Migraine
     Route: 065
  265. DIHYDROERGOTAMINE MESYLATE [Suspect]
     Active Substance: DIHYDROERGOTAMINE MESYLATE
     Route: 065
  266. DIHYDROERGOTAMINE MESYLATE [Suspect]
     Active Substance: DIHYDROERGOTAMINE MESYLATE
     Route: 065
  267. DULOXETINE [Suspect]
     Active Substance: DULOXETINE
     Indication: Migraine
     Route: 065
  268. DULOXETINE [Suspect]
     Active Substance: DULOXETINE
     Route: 065
  269. DULOXETINE [Suspect]
     Active Substance: DULOXETINE
     Route: 065
  270. DULOXETINE [Suspect]
     Active Substance: DULOXETINE
     Route: 065
  271. DULOXETINE [Suspect]
     Active Substance: DULOXETINE
     Route: 065
  272. DULOXETINE [Suspect]
     Active Substance: DULOXETINE
     Route: 065
  273. DULOXETINE [Suspect]
     Active Substance: DULOXETINE
     Route: 065
  274. DULOXETINE [Suspect]
     Active Substance: DULOXETINE
     Route: 065
  275. DULOXETINE [Suspect]
     Active Substance: DULOXETINE
     Route: 065
  276. DULOXETINE [Suspect]
     Active Substance: DULOXETINE
     Route: 065
  277. DULOXETINE [Suspect]
     Active Substance: DULOXETINE
     Route: 065
  278. DULOXETINE [Suspect]
     Active Substance: DULOXETINE
     Route: 065
  279. DULOXETINE [Suspect]
     Active Substance: DULOXETINE
     Route: 065
  280. DULOXETINE [Suspect]
     Active Substance: DULOXETINE
     Route: 065
  281. DULOXETINE [Suspect]
     Active Substance: DULOXETINE
     Route: 065
  282. DULOXETINE [Suspect]
     Active Substance: DULOXETINE
     Route: 065
  283. DULOXETINE [Suspect]
     Active Substance: DULOXETINE
     Route: 065
  284. DULOXETINE [Suspect]
     Active Substance: DULOXETINE
     Route: 065
  285. DULOXETINE [Suspect]
     Active Substance: DULOXETINE
     Route: 065
  286. DULOXETINE [Suspect]
     Active Substance: DULOXETINE
     Route: 065
  287. DULOXETINE [Suspect]
     Active Substance: DULOXETINE
     Route: 065
  288. DULOXETINE [Suspect]
     Active Substance: DULOXETINE
     Route: 065
  289. DULOXETINE [Suspect]
     Active Substance: DULOXETINE
     Route: 065
  290. DULOXETINE [Suspect]
     Active Substance: DULOXETINE
     Route: 065
  291. DULOXETINE [Suspect]
     Active Substance: DULOXETINE
     Route: 065
  292. DULOXETINE [Suspect]
     Active Substance: DULOXETINE
     Route: 065
  293. DULOXETINE [Suspect]
     Active Substance: DULOXETINE
     Route: 065
  294. DULOXETINE [Suspect]
     Active Substance: DULOXETINE
     Route: 065
  295. DULOXETINE [Suspect]
     Active Substance: DULOXETINE
     Route: 065
  296. DULOXETINE [Suspect]
     Active Substance: DULOXETINE
     Route: 065
  297. DULOXETINE HYDROCHLORIDE [Suspect]
     Active Substance: DULOXETINE HYDROCHLORIDE
     Indication: Migraine
     Route: 065
  298. DULOXETINE HYDROCHLORIDE [Suspect]
     Active Substance: DULOXETINE HYDROCHLORIDE
     Route: 065
  299. ENDOCET [Suspect]
     Active Substance: ACETAMINOPHEN\OXYCODONE HYDROCHLORIDE
     Indication: Migraine
  300. ESOMEPRAZOLE MAGNESIUM [Suspect]
     Active Substance: ESOMEPRAZOLE MAGNESIUM
     Indication: Migraine
  301. ESOMEPRAZOLE MAGNESIUM [Suspect]
     Active Substance: ESOMEPRAZOLE MAGNESIUM
  302. ESOMEPRAZOLE MAGNESIUM [Suspect]
     Active Substance: ESOMEPRAZOLE MAGNESIUM
  303. ESOMEPRAZOLE MAGNESIUM [Suspect]
     Active Substance: ESOMEPRAZOLE MAGNESIUM
  304. ESOMEPRAZOLE MAGNESIUM [Suspect]
     Active Substance: ESOMEPRAZOLE MAGNESIUM
  305. ESOMEPRAZOLE MAGNESIUM [Suspect]
     Active Substance: ESOMEPRAZOLE MAGNESIUM
  306. ESOMEPRAZOLE MAGNESIUM [Suspect]
     Active Substance: ESOMEPRAZOLE MAGNESIUM
  307. ESOMEPRAZOLE MAGNESIUM [Suspect]
     Active Substance: ESOMEPRAZOLE MAGNESIUM
  308. ESOMEPRAZOLE MAGNESIUM [Suspect]
     Active Substance: ESOMEPRAZOLE MAGNESIUM
  309. ESOMEPRAZOLE MAGNESIUM [Suspect]
     Active Substance: ESOMEPRAZOLE MAGNESIUM
  310. ESOMEPRAZOLE MAGNESIUM [Suspect]
     Active Substance: ESOMEPRAZOLE MAGNESIUM
  311. ESOMEPRAZOLE MAGNESIUM [Suspect]
     Active Substance: ESOMEPRAZOLE MAGNESIUM
  312. ESOMEPRAZOLE MAGNESIUM [Suspect]
     Active Substance: ESOMEPRAZOLE MAGNESIUM
  313. ESOMEPRAZOLE MAGNESIUM [Suspect]
     Active Substance: ESOMEPRAZOLE MAGNESIUM
  314. ESOMEPRAZOLE MAGNESIUM [Suspect]
     Active Substance: ESOMEPRAZOLE MAGNESIUM
  315. ESOMEPRAZOLE MAGNESIUM [Suspect]
     Active Substance: ESOMEPRAZOLE MAGNESIUM
  316. ESOMEPRAZOLE MAGNESIUM [Suspect]
     Active Substance: ESOMEPRAZOLE MAGNESIUM
  317. ESOMEPRAZOLE MAGNESIUM [Suspect]
     Active Substance: ESOMEPRAZOLE MAGNESIUM
  318. ESOMEPRAZOLE MAGNESIUM [Suspect]
     Active Substance: ESOMEPRAZOLE MAGNESIUM
  319. ESOMEPRAZOLE MAGNESIUM [Suspect]
     Active Substance: ESOMEPRAZOLE MAGNESIUM
  320. ESOMEPRAZOLE MAGNESIUM [Suspect]
     Active Substance: ESOMEPRAZOLE MAGNESIUM
  321. ESOMEPRAZOLE MAGNESIUM [Suspect]
     Active Substance: ESOMEPRAZOLE MAGNESIUM
  322. ESOMEPRAZOLE MAGNESIUM [Suspect]
     Active Substance: ESOMEPRAZOLE MAGNESIUM
  323. ESOMEPRAZOLE MAGNESIUM [Suspect]
     Active Substance: ESOMEPRAZOLE MAGNESIUM
  324. ESOMEPRAZOLE MAGNESIUM [Suspect]
     Active Substance: ESOMEPRAZOLE MAGNESIUM
  325. ESOMEPRAZOLE MAGNESIUM [Suspect]
     Active Substance: ESOMEPRAZOLE MAGNESIUM
  326. ESOMEPRAZOLE MAGNESIUM [Suspect]
     Active Substance: ESOMEPRAZOLE MAGNESIUM
  327. ESOMEPRAZOLE MAGNESIUM [Suspect]
     Active Substance: ESOMEPRAZOLE MAGNESIUM
  328. ESOMEPRAZOLE MAGNESIUM [Suspect]
     Active Substance: ESOMEPRAZOLE MAGNESIUM
  329. ESOMEPRAZOLE MAGNESIUM [Suspect]
     Active Substance: ESOMEPRAZOLE MAGNESIUM
  330. ESOMEPRAZOLE MAGNESIUM [Suspect]
     Active Substance: ESOMEPRAZOLE MAGNESIUM
  331. ESOMEPRAZOLE MAGNESIUM [Suspect]
     Active Substance: ESOMEPRAZOLE MAGNESIUM
  332. ESOMEPRAZOLE MAGNESIUM [Suspect]
     Active Substance: ESOMEPRAZOLE MAGNESIUM
  333. ESOMEPRAZOLE MAGNESIUM [Suspect]
     Active Substance: ESOMEPRAZOLE MAGNESIUM
  334. ESOMEPRAZOLE MAGNESIUM [Suspect]
     Active Substance: ESOMEPRAZOLE MAGNESIUM
  335. ESOMEPRAZOLE MAGNESIUM [Suspect]
     Active Substance: ESOMEPRAZOLE MAGNESIUM
  336. ESOMEPRAZOLE MAGNESIUM [Suspect]
     Active Substance: ESOMEPRAZOLE MAGNESIUM
  337. ESOMEPRAZOLE MAGNESIUM [Suspect]
     Active Substance: ESOMEPRAZOLE MAGNESIUM
  338. ESOMEPRAZOLE MAGNESIUM [Suspect]
     Active Substance: ESOMEPRAZOLE MAGNESIUM
  339. ESOMEPRAZOLE MAGNESIUM [Suspect]
     Active Substance: ESOMEPRAZOLE MAGNESIUM
  340. ESOMEPRAZOLE MAGNESIUM [Suspect]
     Active Substance: ESOMEPRAZOLE MAGNESIUM
  341. ESOMEPRAZOLE MAGNESIUM [Suspect]
     Active Substance: ESOMEPRAZOLE MAGNESIUM
  342. ESOMEPRAZOLE MAGNESIUM [Suspect]
     Active Substance: ESOMEPRAZOLE MAGNESIUM
  343. ESOMEPRAZOLE MAGNESIUM [Suspect]
     Active Substance: ESOMEPRAZOLE MAGNESIUM
  344. ESOMEPRAZOLE MAGNESIUM [Suspect]
     Active Substance: ESOMEPRAZOLE MAGNESIUM
  345. ESOMEPRAZOLE MAGNESIUM [Suspect]
     Active Substance: ESOMEPRAZOLE MAGNESIUM
  346. ESOMEPRAZOLE MAGNESIUM [Suspect]
     Active Substance: ESOMEPRAZOLE MAGNESIUM
  347. ESOMEPRAZOLE MAGNESIUM [Suspect]
     Active Substance: ESOMEPRAZOLE MAGNESIUM
  348. ESOMEPRAZOLE MAGNESIUM [Suspect]
     Active Substance: ESOMEPRAZOLE MAGNESIUM
  349. ESOMEPRAZOLE MAGNESIUM [Suspect]
     Active Substance: ESOMEPRAZOLE MAGNESIUM
  350. GABAPENTIN [Suspect]
     Active Substance: GABAPENTIN
     Indication: Product used for unknown indication
     Route: 065
  351. HYDROMORPHONE [Suspect]
     Active Substance: HYDROMORPHONE
     Indication: Migraine
     Route: 065
  352. HYDROMORPHONE [Suspect]
     Active Substance: HYDROMORPHONE
     Route: 065
  353. HYDROMORPHONE [Suspect]
     Active Substance: HYDROMORPHONE
     Route: 065
  354. KETAMINE HYDROCHLORIDE [Suspect]
     Active Substance: KETAMINE HYDROCHLORIDE
     Indication: Migraine
     Route: 065
  355. KETAMINE HYDROCHLORIDE [Suspect]
     Active Substance: KETAMINE HYDROCHLORIDE
     Route: 065
  356. MORPHINE SULFATE [Suspect]
     Active Substance: MORPHINE SULFATE
     Indication: Migraine
     Route: 065
  357. MORPHINE SULFATE [Suspect]
     Active Substance: MORPHINE SULFATE
     Route: 065
  358. MORPHINE SULFATE [Suspect]
     Active Substance: MORPHINE SULFATE
     Route: 065
  359. NAPROXEN [Suspect]
     Active Substance: NAPROXEN
     Indication: Product used for unknown indication
  360. NAPROXEN [Suspect]
     Active Substance: NAPROXEN
  361. NAPROXEN [Suspect]
     Active Substance: NAPROXEN
  362. NAPROXEN [Suspect]
     Active Substance: NAPROXEN
  363. NAPROXEN [Suspect]
     Active Substance: NAPROXEN
  364. NAPROXEN [Suspect]
     Active Substance: NAPROXEN
  365. NAPROXEN [Suspect]
     Active Substance: NAPROXEN
  366. NAPROXEN [Suspect]
     Active Substance: NAPROXEN
  367. NAPROXEN [Suspect]
     Active Substance: NAPROXEN
  368. NAPROXEN [Suspect]
     Active Substance: NAPROXEN
  369. NAPROXEN [Suspect]
     Active Substance: NAPROXEN
  370. NAPROXEN [Suspect]
     Active Substance: NAPROXEN
  371. NAPROXEN [Suspect]
     Active Substance: NAPROXEN
  372. NAPROXEN [Suspect]
     Active Substance: NAPROXEN
  373. NAPROXEN [Suspect]
     Active Substance: NAPROXEN
  374. NAPROXEN [Suspect]
     Active Substance: NAPROXEN
  375. NORTRIPTYLINE [Suspect]
     Active Substance: NORTRIPTYLINE
     Indication: Product used for unknown indication
     Route: 065
  376. NORTRIPTYLINE HYDROCHLORIDE [Suspect]
     Active Substance: NORTRIPTYLINE HYDROCHLORIDE
     Indication: Product used for unknown indication
  377. ONDANSETRON [Suspect]
     Active Substance: ONDANSETRON
     Indication: Migraine
  378. ONDANSETRON [Suspect]
     Active Substance: ONDANSETRON
  379. ONDANSETRON [Suspect]
     Active Substance: ONDANSETRON
  380. ONDANSETRON [Suspect]
     Active Substance: ONDANSETRON
     Route: 065
  381. ONDANSETRON [Suspect]
     Active Substance: ONDANSETRON
     Route: 065
  382. ONDANSETRON [Suspect]
     Active Substance: ONDANSETRON
     Route: 065
  383. ONDANSETRON [Suspect]
     Active Substance: ONDANSETRON
     Route: 065
  384. ONDANSETRON [Suspect]
     Active Substance: ONDANSETRON
     Route: 065
  385. ONDANSETRON [Suspect]
     Active Substance: ONDANSETRON
     Route: 065
  386. PANADOL [Suspect]
     Active Substance: ACETAMINOPHEN
     Indication: Migraine
     Route: 065
  387. RIZATRIPTAN BENZOATE [Suspect]
     Active Substance: RIZATRIPTAN BENZOATE
     Indication: Product used for unknown indication
     Route: 065
  388. TENORETIC [Suspect]
     Active Substance: ATENOLOL\CHLORTHALIDONE
     Indication: Migraine
  389. TENORETIC [Suspect]
     Active Substance: ATENOLOL\CHLORTHALIDONE
  390. TENORETIC [Suspect]
     Active Substance: ATENOLOL\CHLORTHALIDONE
  391. TENORETIC [Suspect]
     Active Substance: ATENOLOL\CHLORTHALIDONE
  392. TENORETIC [Suspect]
     Active Substance: ATENOLOL\CHLORTHALIDONE
  393. TENORETIC [Suspect]
     Active Substance: ATENOLOL\CHLORTHALIDONE
  394. TENORETIC [Suspect]
     Active Substance: ATENOLOL\CHLORTHALIDONE
  395. TENORETIC [Suspect]
     Active Substance: ATENOLOL\CHLORTHALIDONE
  396. TENORETIC [Suspect]
     Active Substance: ATENOLOL\CHLORTHALIDONE
  397. TENORETIC [Suspect]
     Active Substance: ATENOLOL\CHLORTHALIDONE
  398. TENORETIC [Suspect]
     Active Substance: ATENOLOL\CHLORTHALIDONE
  399. TENORETIC [Suspect]
     Active Substance: ATENOLOL\CHLORTHALIDONE
  400. TENORETIC [Suspect]
     Active Substance: ATENOLOL\CHLORTHALIDONE
  401. TENORETIC [Suspect]
     Active Substance: ATENOLOL\CHLORTHALIDONE
  402. TENORETIC [Suspect]
     Active Substance: ATENOLOL\CHLORTHALIDONE
  403. TENORETIC [Suspect]
     Active Substance: ATENOLOL\CHLORTHALIDONE
  404. TENORETIC [Suspect]
     Active Substance: ATENOLOL\CHLORTHALIDONE
  405. TENORETIC [Suspect]
     Active Substance: ATENOLOL\CHLORTHALIDONE
  406. TENORETIC [Suspect]
     Active Substance: ATENOLOL\CHLORTHALIDONE
  407. TENORETIC [Suspect]
     Active Substance: ATENOLOL\CHLORTHALIDONE
  408. TENORETIC [Suspect]
     Active Substance: ATENOLOL\CHLORTHALIDONE
  409. TENORETIC [Suspect]
     Active Substance: ATENOLOL\CHLORTHALIDONE
  410. TENORETIC [Suspect]
     Active Substance: ATENOLOL\CHLORTHALIDONE
  411. TENORETIC [Suspect]
     Active Substance: ATENOLOL\CHLORTHALIDONE
  412. TENORETIC [Suspect]
     Active Substance: ATENOLOL\CHLORTHALIDONE
  413. TENORETIC [Suspect]
     Active Substance: ATENOLOL\CHLORTHALIDONE
  414. TENORETIC [Suspect]
     Active Substance: ATENOLOL\CHLORTHALIDONE
  415. TENORETIC [Suspect]
     Active Substance: ATENOLOL\CHLORTHALIDONE
  416. TENORETIC [Suspect]
     Active Substance: ATENOLOL\CHLORTHALIDONE
  417. TENORETIC [Suspect]
     Active Substance: ATENOLOL\CHLORTHALIDONE
  418. TENORETIC [Suspect]
     Active Substance: ATENOLOL\CHLORTHALIDONE
  419. TENORETIC [Suspect]
     Active Substance: ATENOLOL\CHLORTHALIDONE
  420. TENORETIC [Suspect]
     Active Substance: ATENOLOL\CHLORTHALIDONE
  421. TENORETIC [Suspect]
     Active Substance: ATENOLOL\CHLORTHALIDONE
  422. TENORETIC [Suspect]
     Active Substance: ATENOLOL\CHLORTHALIDONE
  423. TENORETIC [Suspect]
     Active Substance: ATENOLOL\CHLORTHALIDONE
  424. TENORETIC [Suspect]
     Active Substance: ATENOLOL\CHLORTHALIDONE
  425. TENORETIC [Suspect]
     Active Substance: ATENOLOL\CHLORTHALIDONE
  426. TENORETIC [Suspect]
     Active Substance: ATENOLOL\CHLORTHALIDONE
  427. TENORETIC [Suspect]
     Active Substance: ATENOLOL\CHLORTHALIDONE
  428. TENORETIC [Suspect]
     Active Substance: ATENOLOL\CHLORTHALIDONE
  429. TENORETIC [Suspect]
     Active Substance: ATENOLOL\CHLORTHALIDONE
  430. TENORETIC [Suspect]
     Active Substance: ATENOLOL\CHLORTHALIDONE
  431. TENORETIC [Suspect]
     Active Substance: ATENOLOL\CHLORTHALIDONE
  432. TENORETIC [Suspect]
     Active Substance: ATENOLOL\CHLORTHALIDONE
  433. TENORETIC [Suspect]
     Active Substance: ATENOLOL\CHLORTHALIDONE
  434. TENORETIC [Suspect]
     Active Substance: ATENOLOL\CHLORTHALIDONE
  435. TOPIRAMATE [Suspect]
     Active Substance: TOPIRAMATE
     Indication: Migraine
     Route: 065
  436. TOPIRAMATE [Suspect]
     Active Substance: TOPIRAMATE
     Route: 065
  437. TOPIRAMATE [Suspect]
     Active Substance: TOPIRAMATE
  438. TRAMADOL HYDROCHLORIDE [Suspect]
     Active Substance: TRAMADOL HYDROCHLORIDE
     Indication: Migraine
     Route: 065
  439. TRIAMCINOLONE [Suspect]
     Active Substance: TRIAMCINOLONE
     Indication: Migraine
     Route: 014
  440. VENLAFAXINE HYDROCHLORIDE [Suspect]
     Active Substance: VENLAFAXINE HYDROCHLORIDE
     Indication: Migraine
     Route: 065
  441. VENLAFAXINE HYDROCHLORIDE [Suspect]
     Active Substance: VENLAFAXINE HYDROCHLORIDE
     Route: 065
  442. VENLAFAXINE HYDROCHLORIDE [Suspect]
     Active Substance: VENLAFAXINE HYDROCHLORIDE
     Route: 065
  443. VOLTAREN [Suspect]
     Active Substance: DICLOFENAC SODIUM
     Indication: Product used for unknown indication
     Route: 065
  444. TORADOL [Suspect]
     Active Substance: KETOROLAC TROMETHAMINE
     Indication: Migraine
     Route: 065
  445. TORADOL [Suspect]
     Active Substance: KETOROLAC TROMETHAMINE
     Route: 065
  446. TORADOL [Suspect]
     Active Substance: KETOROLAC TROMETHAMINE
     Route: 065

REACTIONS (8)
  - Hyperhidrosis [Unknown]
  - Drug ineffective [Unknown]
  - Nausea [Unknown]
  - Nephrolithiasis [Unknown]
  - Nightmare [Unknown]
  - Off label use [Unknown]
  - Product use in unapproved indication [Unknown]
  - Sedation [Unknown]
